FAERS Safety Report 8415809-7 (Version None)
Quarter: 2012Q2

REPORT INFORMATION
  Report Type: 
  Country: None (occurrence: None)
  Receive Date: 20120323
  Receipt Date: 20111222
  Transmission Date: 20120825
  Serious: Yes (Hospitalization)
  Sender: FDA-Public Use
  Company Number: 163-21880-11123169

PATIENT
  Age: 75 Year
  Sex: Male

DRUGS (7)
  1. REVLIMID [Suspect]
     Indication: MULTIPLE MYELOMA
     Dosage: 25 MG, 1 IN 1 D, PO
     Route: 048
     Dates: start: 20111208
  2. OMEPRAZOLE [Concomitant]
  3. METFORMIN HCL [Concomitant]
  4. POTASSIUM CHLORIDE [Concomitant]
  5. MIDODRINE HCL (MIDODRIN EHYDROCHLORIDE) [Concomitant]
  6. OXYCODONE HCL [Concomitant]
  7. FUROSEMIDE [Concomitant]

REACTIONS (2)
  - ASTHENIA [None]
  - FATIGUE [None]
